FAERS Safety Report 5482651-9 (Version None)
Quarter: 2007Q4

REPORT INFORMATION
  Report Type: 
  Country: None (occurrence: None)
  Receive Date: 20071011
  Receipt Date: 20071005
  Transmission Date: 20080405
  Serious: Yes (Other)
  Sender: FDA-Public Use
  Company Number: IE-WYE-G00431507

PATIENT
  Age: 40 Year
  Sex: Male

DRUGS (6)
  1. EFFEXOR XR [Suspect]
     Dosage: 150MG FREQUENCY UNKNOWN
     Route: 048
  2. EFFEXOR XR [Suspect]
     Dosage: 75MG FREQUENCY UNKNOWN
     Route: 048
  3. LITHIUM [Suspect]
     Dosage: 1200MG FREQUENCY UNKNOWN
     Route: 048
  4. LITHIUM [Suspect]
     Dosage: 1000MG FREQUENCY UNKNOWN
  5. LITHIUM [Suspect]
     Dosage: 900MG FREQUENCY UNKNOWN
  6. EFFEXOR [Suspect]
     Route: 048

REACTIONS (5)
  - ANTIPSYCHOTIC DRUG LEVEL INCREASED [None]
  - DYSARTHRIA [None]
  - EXTRAPYRAMIDAL DISORDER [None]
  - HEADACHE [None]
  - TREMOR [None]
